FAERS Safety Report 5298252-1 (Version None)
Quarter: 2007Q1

REPORT INFORMATION
  Report Type: 
  Country: None (occurrence: None)
  Receive Date: 20070205
  Receipt Date: 20060327
  Transmission Date: 20070707
  Serious: Yes (Other)
  Sender: FDA-Public Use
  Company Number: US200603003742

PATIENT
  Age: 61 Year
  Sex: Female
  Weight: 81.2 kg

DRUGS (1)
  1. EVISTA [Suspect]
     Dosage: 60 MG, UNK, ORAL
     Route: 048
     Dates: start: 19990101, end: 20060101

REACTIONS (1)
  - EMBOLISM [None]
